FAERS Safety Report 24832547 (Version 3)
Quarter: 2025Q1

REPORT INFORMATION
  Report Type: Report from Study
  Country: US (occurrence: US)
  Receive Date: 20250110
  Receipt Date: 20250220
  Transmission Date: 20250408
  Serious: No
  Sender: BRISTOL-MYERS SQUIBB COMPANY
  Company Number: US-BRISTOL-MYERS SQUIBB COMPANY-2025-004503

PATIENT
  Age: 79 Year
  Sex: Female
  Weight: 70.31 kg

DRUGS (3)
  1. OPDIVO [Suspect]
     Active Substance: NIVOLUMAB
     Indication: Renal cell carcinoma
     Route: 042
     Dates: start: 2024
  2. CABOMETYX [Suspect]
     Active Substance: CABOZANTINIB S-MALATE
     Indication: Renal cell carcinoma
     Dates: start: 2024, end: 2024
  3. RETINAL, ALL-TRANS [Concomitant]
     Active Substance: RETINAL, ALL-TRANS
     Indication: Retinal disorder

REACTIONS (5)
  - Alopecia [Unknown]
  - Burning sensation [Unknown]
  - Urinary tract infection [Unknown]
  - Weight decreased [Unknown]
  - Illness [Unknown]

NARRATIVE: CASE EVENT DATE: 20240101
